FAERS Safety Report 6216504-5 (Version None)
Quarter: 2009Q2

REPORT INFORMATION
  Report Type: 
  Country: None (occurrence: None)
  Receive Date: 20090605
  Receipt Date: 20090526
  Transmission Date: 20091009
  Serious: Yes (Hospitalization)
  Sender: FDA-Public Use
  Company Number: FR-MERCK-0901FRA00051

PATIENT
  Age: 53 Year
  Sex: Female

DRUGS (7)
  1. JANUVIA [Suspect]
     Indication: TYPE 2 DIABETES MELLITUS
     Route: 048
     Dates: start: 20090109, end: 20090113
  2. METFORMIN HYDROCHLORIDE [Concomitant]
     Indication: TYPE 2 DIABETES MELLITUS
     Route: 048
     Dates: start: 20080101
  3. MORPHINE SULFATE [Concomitant]
     Indication: FIBROMYALGIA
     Route: 048
  4. MORPHINE SULFATE [Concomitant]
     Indication: PAIN
     Route: 048
  5. OXYGEN [Concomitant]
     Indication: SLEEP APNOEA SYNDROME
  6. FUROSEMIDE [Concomitant]
     Route: 048
  7. MORPHINE SULFATE [Concomitant]
     Route: 048

REACTIONS (2)
  - BLISTER [None]
  - TOXIC SKIN ERUPTION [None]
